FAERS Safety Report 6108966-9 (Version None)
Quarter: 2009Q1

REPORT INFORMATION
  Report Type: 
  Country: None (occurrence: None)
  Receive Date: 20090306
  Receipt Date: 20090220
  Transmission Date: 20090719
  Serious: Yes (Hospitalization, Other)
  Sender: FDA-Public Use
  Company Number: 2009MB000013

PATIENT
  Age: 57 Year
  Sex: Female
  Weight: 99.7913 kg

DRUGS (27)
  1. KEFLEX [Suspect]
     Indication: LOCALISED INFECTION
     Dates: start: 20080709, end: 20080101
  2. BYETTA [Suspect]
     Indication: DIABETES MELLITUS
     Dosage: 10 UG; BID; SC, 5 UG; BID; SC
     Route: 058
     Dates: start: 20060101, end: 20060201
  3. BYETTA [Suspect]
     Indication: DIABETES MELLITUS
     Dosage: 10 UG; BID; SC, 5 UG; BID; SC
     Route: 058
     Dates: start: 20060201, end: 20080714
  4. BYETTA [Suspect]
     Indication: DIABETES MELLITUS
     Dosage: 10 UG; BID; SC, 5 UG; BID; SC
     Route: 058
     Dates: start: 20080901, end: 20081001
  5. BYETTA [Suspect]
     Indication: DIABETES MELLITUS
     Dosage: 10 UG; BID; SC, 5 UG; BID; SC
     Route: 058
     Dates: start: 20081001
  6. CYMBALTA [Suspect]
     Indication: DEPRESSION
     Dosage: 90 MG; QD; PO
     Route: 048
     Dates: start: 20050101
  7. CYMBALTA [Suspect]
     Indication: DIABETIC NEUROPATHY
     Dosage: 90 MG; QD; PO
     Route: 048
     Dates: start: 20050101
  8. METFORMIN HCL [Concomitant]
  9. ACTOS [Concomitant]
  10. AMBIEN [Concomitant]
  11. AMLODIPINE BESYLATE [Concomitant]
  12. ASPIRIN [Concomitant]
  13. COZAAR [Concomitant]
  14. DESIPRAMINE HYDROCHLORIDE [Concomitant]
  15. FISH OIL [Concomitant]
  16. OMEPRAZOLE [Concomitant]
  17. VITAMIN A [Concomitant]
  18. ASCORBIC ACID [Concomitant]
  19. XANAX [Concomitant]
  20. XANAX XR [Concomitant]
  21. FLUOCINONIDE [Concomitant]
  22. FLUOROMETHOLONE [Concomitant]
  23. GENTEAL /00445101/ [Concomitant]
  24. RESTASIS [Concomitant]
  25. IBUPROFEN TABLETS [Concomitant]
  26. MULTI-VITAMINS [Concomitant]
  27. FENOFIBRATE [Concomitant]

REACTIONS (12)
  - APPARENT DEATH [None]
  - EYE BURNS [None]
  - KERATOCONJUNCTIVITIS SICCA [None]
  - LIVER DISORDER [None]
  - MULTI-ORGAN FAILURE [None]
  - NERVE INJURY [None]
  - ORAL CANDIDIASIS [None]
  - PAIN [None]
  - PHOTOSENSITIVITY REACTION [None]
  - SCAR [None]
  - STEVENS-JOHNSON SYNDROME [None]
  - SUPERFICIAL INJURY OF EYE [None]
